FAERS Safety Report 24744081 (Version 1)
Quarter: 2024Q4

REPORT INFORMATION
  Report Type: Spontaneous
  Country: US (occurrence: US)
  Receive Date: 20241217
  Receipt Date: 20241217
  Transmission Date: 20250115
  Serious: Yes (Death, Other)
  Sender: AMGEN
  Company Number: US-AMGEN-USASP2024243590

PATIENT
  Sex: Female
  Weight: 86.5 kg

DRUGS (18)
  1. PROLIA [Suspect]
     Active Substance: DENOSUMAB
     Indication: Osteoporosis
     Dosage: 60 MILLIGRAM, Q6MO
     Route: 065
  2. TUKYSA [Suspect]
     Active Substance: TUCATINIB
     Indication: Breast cancer metastatic
     Dosage: 300 MILLIGRAM, BID
     Route: 048
     Dates: start: 20240830, end: 20240926
  3. XELODA [Concomitant]
     Active Substance: CAPECITABINE
     Dosage: 500 MILLIGRAM, BID 3 TABLETS (14 DAYS ON, 7 DAYS OFF)
     Dates: start: 20240830
  4. XELODA [Concomitant]
     Active Substance: CAPECITABINE
     Dosage: 1000 MILLIGRAM, BID (7 DAYS ON, 7 DAYS OFF)
     Dates: start: 20240904, end: 20240930
  5. HERCEPTIN [Concomitant]
     Active Substance: TRASTUZUMAB
  6. PERJETA [Concomitant]
     Active Substance: PERTUZUMAB
  7. TAXOTERE [Concomitant]
     Active Substance: DOCETAXEL
  8. ENHERTU [Concomitant]
     Active Substance: FAM-TRASTUZUMAB DERUXTECAN-NXKI
     Dosage: UNK
     Dates: start: 20200214
  9. OGIVRI [Concomitant]
     Active Substance: TRASTUZUMAB-DKST
     Dosage: 407 MILLILGRAM IN 0.9 PERCENT SODIUM CHLORIDE
     Dates: start: 20240904
  10. PNEUMOCOCCAL VACCINE POLYVALENT NOS [Concomitant]
     Active Substance: PNEUMOCOCCAL VACCINE, POLYVALENT
  11. CALCIUM CARBONATE\VITAMIN D [Concomitant]
     Active Substance: CALCIUM CARBONATE\VITAMIN D
     Dosage: TAKE 2 TABLETS BY MOUTH
     Route: 048
  12. DECADRON [Concomitant]
     Active Substance: DEXAMETHASONE
     Dosage: 2 MILLIGRAM, QD
     Route: 048
     Dates: start: 20240801
  13. COZAAR [Concomitant]
     Active Substance: LOSARTAN POTASSIUM
     Dosage: 50 MILLIGRAM, QD
     Route: 048
     Dates: start: 20230926
  14. ZOFRAN [Concomitant]
     Active Substance: ONDANSETRON HYDROCHLORIDE
     Indication: Nausea
     Dosage: 8 MILLIGRAM, Q8H
     Route: 048
     Dates: start: 20200925, end: 20240930
  15. ZOFRAN [Concomitant]
     Active Substance: ONDANSETRON HYDROCHLORIDE
     Indication: Vomiting
  16. COMPAZINE [Concomitant]
     Active Substance: PROCHLORPERAZINE MALEATE
     Indication: Nausea
     Dosage: 10 MILLIGRAM, Q6H
     Route: 048
     Dates: start: 20240827, end: 20240930
  17. COMPAZINE [Concomitant]
     Active Substance: PROCHLORPERAZINE MALEATE
     Indication: Vomiting
  18. CRESTOR [Concomitant]
     Active Substance: ROSUVASTATIN CALCIUM
     Dosage: 10 MILLIGRAM, QD
     Route: 048
     Dates: start: 20230926

REACTIONS (28)
  - Death [Fatal]
  - Metastases to central nervous system [Unknown]
  - Metastases to chest wall [Unknown]
  - HER2 positive breast cancer [Unknown]
  - Radiation necrosis [Unknown]
  - Dysdiadochokinesis [Unknown]
  - Chronic kidney disease [Unknown]
  - Open angle glaucoma [Unknown]
  - Radiation retinopathy [Unknown]
  - Unevaluable event [Recovering/Resolving]
  - Fatigue [Unknown]
  - Cough [Unknown]
  - Upper-airway cough syndrome [Unknown]
  - Pain in extremity [Unknown]
  - Neck pain [Recovered/Resolved]
  - Headache [Unknown]
  - Sinusitis [Unknown]
  - Illness [Unknown]
  - Stress [Unknown]
  - Constipation [Recovering/Resolving]
  - Fall [Unknown]
  - Memory impairment [Unknown]
  - Disorientation [Unknown]
  - Gait disturbance [Unknown]
  - Lymphoedema [Unknown]
  - Hypertension [Unknown]
  - Hyperlipidaemia [Unknown]
  - Supraventricular extrasystoles [Unknown]

NARRATIVE: CASE EVENT DATE: 20180201
